FAERS Safety Report 12328175 (Version 1)
Quarter: 2016Q2

REPORT INFORMATION
  Report Type: Spontaneous
  Country: US (occurrence: US)
  Receive Date: 20160503
  Receipt Date: 20160503
  Transmission Date: 20160815
  Serious: No
  Sender: FDA-Public Use
  Company Number: US-PERRIGO-15US008867

PATIENT
  Age: 68 Year
  Sex: Female
  Weight: 67.12 kg

DRUGS (3)
  1. SYNTHROID [Concomitant]
     Active Substance: LEVOTHYROXINE SODIUM
     Indication: THYROID DISORDER
     Dosage: 88 MG
     Route: 065
  2. ATORVASTATIN [Concomitant]
     Active Substance: ATORVASTATIN
     Indication: BLOOD CHOLESTEROL INCREASED
     Dosage: 40 MG
     Route: 065
     Dates: start: 2011
  3. NAPROXEN SODIUM-PSEUDOEPHEDRINE HYDROCHLORIDE [Suspect]
     Active Substance: NAPROXEN SODIUM\PSEUDOEPHEDRINE HYDROCHLORIDE
     Indication: PRURITUS
     Dosage: 2 TABLETS, TWICE IN 3 TO 4 HOURS
     Route: 048
     Dates: start: 20150823, end: 20150824

REACTIONS (7)
  - Off label use [Recovered/Resolved]
  - Insomnia [Unknown]
  - Vomiting [Recovered/Resolved]
  - Fatigue [Unknown]
  - Overdose [Recovered/Resolved]
  - Nervousness [Unknown]
  - Accidental overdose [None]

NARRATIVE: CASE EVENT DATE: 20150823
